FAERS Safety Report 8506883-8 (Version None)
Quarter: 2012Q3

REPORT INFORMATION
  Report Type: 
  Country: None (occurrence: None)
  Receive Date: 20120712
  Receipt Date: 20120705
  Transmission Date: 20120928
  Serious: Yes (Other)
  Sender: FDA-Public Use
  Company Number: CA-BAYER-2012-067306

PATIENT
  Age: 24 Year
  Sex: Female

DRUGS (2)
  1. YASMIN [Suspect]
     Dosage: 1 DF, UNK
     Route: 048
  2. AMITRIPTYLINE HCL [Concomitant]

REACTIONS (2)
  - OVARIAN ATROPHY [None]
  - OVARIAN DISORDER [None]
